FAERS Safety Report 4562854-8 (Version None)
Quarter: 2005Q1

REPORT INFORMATION
  Report Type: 
  Country: None (occurrence: None)
  Receive Date: 20050121
  Receipt Date: 20041124
  Transmission Date: 20050727
  Serious: Yes (Other)
  Sender: FDA-Public Use
  Company Number: 2004100128

PATIENT
  Age: 70 Year
  Sex: Male

DRUGS (4)
  1. IRINOTECAN HCL [Suspect]
     Indication: GASTRIC CANCER
     Dosage: 50 MG/M2 (CYCLIC), INTRAVENOUS
     Route: 042
     Dates: start: 20040820, end: 20041101
  2. PACLITAXEL [Suspect]
     Indication: GASTRIC CANCER
     Dosage: 80 MG/M2 (CYCLIC), INTRAVENOUS
     Route: 042
     Dates: start: 20040820, end: 20041101
  3. DEXAMETHASONE SODIUM PHOSPHATE [Suspect]
     Indication: ILL-DEFINED DISORDER
     Dosage: 20 MG (CYCLIC), INTRAVENOUS
     Route: 042
     Dates: start: 20040820, end: 20041101
  4. PREDNISONE [Concomitant]

REACTIONS (2)
  - FUNGAL INFECTION [None]
  - PULMONARY FIBROSIS [None]
